FAERS Safety Report 7438506-3 (Version None)
Quarter: 2011Q2

REPORT INFORMATION
  Report Type: 
  Country: None (occurrence: None)
  Receive Date: 20110426
  Receipt Date: 20101130
  Transmission Date: 20111010
  Serious: No
  Sender: FDA-Public Use
  Company Number: US-BAYER-2011-034617

PATIENT
  Age: 58 Year
  Sex: Male
  Weight: 240 kg

DRUGS (1)
  1. ALEVE (CAPLET) [Suspect]
     Indication: BACK PAIN
     Dosage: 2 DF, ONCE
     Route: 048
     Dates: start: 20101130

REACTIONS (4)
  - HYPERSENSITIVITY [None]
  - PYREXIA [None]
  - ABDOMINAL PAIN [None]
  - RETCHING [None]
